FAERS Safety Report 8932299 (Version 1)
Quarter: 2012Q4

REPORT INFORMATION
  Report Type: Report from Study
  Country: US (occurrence: US)
  Receive Date: 20121128
  Receipt Date: 20121128
  Transmission Date: 20130627
  Serious: Yes (Hospitalization, Other)
  Sender: FDA-Public Use
  Company Number: US-SANOFI-AVENTIS-2012SA085453

PATIENT
  Age: 51 Year
  Sex: Female
  Weight: 49.4 kg

DRUGS (3)
  1. DOCETAXEL [Suspect]
     Indication: METASTATIC BREAST CANCER
     Route: 042
  2. TRASTUZUMAB [Suspect]
     Indication: METASTATIC BREAST CANCER
     Route: 042
  3. BEVACIZUMAB [Suspect]
     Indication: METASTATIC BREAST CANCER
     Route: 041
     Dates: start: 20100624

REACTIONS (7)
  - Urinary retention [Recovered/Resolved with Sequelae]
  - Candidiasis [Unknown]
  - Haemoglobin [Unknown]
  - Lymphopenia [Recovered/Resolved with Sequelae]
  - Dyspnoea [Unknown]
  - Pyrexia [Unknown]
  - Cough [Unknown]
